FAERS Safety Report 6803766-6 (Version None)
Quarter: 2010Q2

REPORT INFORMATION
  Report Type: 
  Country: None (occurrence: None)
  Receive Date: 20100628
  Receipt Date: 20100622
  Transmission Date: 20101027
  Serious: Yes (Hospitalization)
  Sender: FDA-Public Use
  Company Number: US-GILEAD-2010-0027519

PATIENT
  Sex: Female

DRUGS (14)
  1. LETAIRIS [Suspect]
     Indication: PULMONARY ARTERIAL HYPERTENSION
     Route: 048
     Dates: start: 20090623
  2. OXYGEN [Concomitant]
  3. PLAVIX [Concomitant]
  4. PRINIVIL [Concomitant]
  5. NADOLOL [Concomitant]
  6. ALBUTEROL [Concomitant]
  7. ATROVENT [Concomitant]
  8. SYMBICORT [Concomitant]
  9. GLIPIZIDE [Concomitant]
  10. LOPID [Concomitant]
  11. LIPITOR [Concomitant]
  12. ATIVAN [Concomitant]
  13. LEXAPRO [Concomitant]
  14. NITROGLYCERIN [Concomitant]

REACTIONS (1)
  - CHRONIC OBSTRUCTIVE PULMONARY DISEASE [None]
